FAERS Safety Report 4286044-1 (Version None)
Quarter: 2004Q1

REPORT INFORMATION
  Report Type: 
  Country: None (occurrence: None)
  Receive Date: 20040205
  Receipt Date: 20031024
  Transmission Date: 20041129
  Serious: Yes (Other)
  Sender: FDA-Public Use
  Company Number: PHNU2003DE03833

PATIENT
  Age: 34 Year
  Sex: Female

DRUGS (9)
  1. CARBIMAZOLE [Concomitant]
     Indication: HYPERTHYROIDISM
     Dosage: 2,5 MG/D
     Route: 048
     Dates: start: 20031115, end: 20031203
  2. CARBIMAZOLE [Concomitant]
     Dosage: 5 MG/D
     Route: 048
     Dates: start: 20030710, end: 20031115
  3. METOPROLOL [Concomitant]
     Indication: HYPERTENSION
     Dosage: 100 MG/D
     Route: 048
     Dates: start: 20030109, end: 20030101
  4. METOPROLOL [Concomitant]
     Dosage: 50 MG/D
     Route: 048
     Dates: start: 20030804, end: 20031203
  5. CALCIUM [Concomitant]
     Indication: HYPOCALCAEMIA
     Dosage: 1000 MG/D
     Route: 048
     Dates: start: 20030109, end: 20040121
  6. FERROUS SULFATE TAB [Concomitant]
     Dosage: 1 DF, BID
     Route: 048
     Dates: start: 20010722, end: 20040121
  7. DOPEGYT [Concomitant]
     Dosage: 500 MG/D
     Route: 048
     Dates: start: 20031031, end: 20040121
  8. DIOVAN [Suspect]
     Indication: HYPERTENSION
     Dosage: 40 MG/D
     Route: 048
     Dates: start: 20030715, end: 20031031
  9. DIOVAN [Suspect]
     Dosage: 80 MG/D
     Route: 048
     Dates: start: 20030630, end: 20030715

REACTIONS (10)
  - APGAR SCORE LOW [None]
  - CAESAREAN SECTION [None]
  - COMPLICATIONS OF MATERNAL EXPOSURE TO THERAPEUTIC DRUGS [None]
  - HYPERTENSION [None]
  - HYPERTHYROIDISM [None]
  - OEDEMA [None]
  - PLACENTAL INSUFFICIENCY [None]
  - PREGNANCY [None]
  - PREMATURE BABY [None]
  - PROTEINURIA [None]
